FAERS Safety Report 6808589-X (Version None)
Quarter: 2010Q2

REPORT INFORMATION
  Report Type: 
  Country: None (occurrence: None)
  Receive Date: 20100629
  Receipt Date: 20090724
  Transmission Date: 20101027
  Serious: No
  Sender: FDA-Public Use
  Company Number: US-PFIZER INC-2009247233

PATIENT
  Sex: Male

DRUGS (3)
  1. VIAGRA [Suspect]
     Indication: ERECTILE DYSFUNCTION
     Dosage: 100 MG, AS NEEDED
     Route: 048
  2. TIMOLOL [Concomitant]
     Indication: GLAUCOMA
     Dosage: UNK
  3. SIMVASTATIN [Concomitant]
     Dosage: 10 MG, UNK

REACTIONS (1)
  - DRUG INEFFECTIVE [None]
